FAERS Safety Report 6824808-8 (Version None)
Quarter: 2010Q3

REPORT INFORMATION
  Report Type: 
  Country: None (occurrence: None)
  Receive Date: 20100708
  Receipt Date: 20100629
  Transmission Date: 20110219
  Serious: No
  Sender: FDA-Public Use
  Company Number: US-MYLANLABS-2010S1011601

PATIENT
  Age: 35 Year
  Sex: Female
  Weight: 104.33 kg

DRUGS (7)
  1. FENTANYL-100 [Suspect]
     Indication: ARTHRALGIA
     Dosage: CHANGED Q72H
     Route: 062
     Dates: start: 20100101
  2. CYMBALTA [Concomitant]
     Indication: BIPOLAR DISORDER
     Route: 048
  3. XANAX [Concomitant]
     Indication: ANXIETY
     Route: 048
  4. LAMICTAL [Concomitant]
     Indication: BIPOLAR DISORDER
     Route: 048
  5. NORCO [Concomitant]
     Indication: ARTHRALGIA
     Route: 048
  6. XYREM [Concomitant]
     Indication: NARCOLEPSY
     Route: 048
  7. ADDERALL 10 [Concomitant]
     Indication: NARCOLEPSY
     Route: 048

REACTIONS (4)
  - ARTHRALGIA [None]
  - DRUG INEFFECTIVE [None]
  - DRUG SCREEN NEGATIVE [None]
  - DRUG WITHDRAWAL SYNDROME [None]
